FAERS Safety Report 18773057 (Version 1)
Quarter: 2021Q1

REPORT INFORMATION
  Report Type: Spontaneous
  Country: CO (occurrence: CO)
  Receive Date: 20210122
  Receipt Date: 20210122
  Transmission Date: 20210419
  Serious: Yes (Other)
  Sender: FDA-Public Use
  Company Number: CO-PFIZER INC-2021025922

PATIENT
  Age: 58 Year
  Sex: Female

DRUGS (1)
  1. GENOTROPIN [Suspect]
     Active Substance: SOMATROPIN
     Dosage: UNK
     Route: 058
     Dates: start: 202007

REACTIONS (5)
  - Pain in extremity [Unknown]
  - Colon cancer [Unknown]
  - Genital pain [Unknown]
  - Condition aggravated [Unknown]
  - Headache [Unknown]
